FAERS Safety Report 8118079-2 (Version None)
Quarter: 2012Q1

REPORT INFORMATION
  Report Type: 
  Country: None (occurrence: None)
  Receive Date: 20120207
  Receipt Date: 20120201
  Transmission Date: 20120608
  Serious: No
  Sender: FDA-Public Use
  Company Number: US-PFIZER INC-2012028260

PATIENT
  Sex: Male

DRUGS (2)
  1. LYRICA [Suspect]
     Indication: HYPOAESTHESIA
  2. LYRICA [Suspect]
     Indication: PARAESTHESIA
     Dosage: 50 MG, 1X/DAY
     Route: 048
     Dates: start: 20120101

REACTIONS (2)
  - CHEST PAIN [None]
  - ABDOMINAL DISTENSION [None]
